FAERS Safety Report 8419941-3 (Version None)
Quarter: 2012Q2

REPORT INFORMATION
  Report Type: 
  Country: None (occurrence: None)
  Receive Date: 20120607
  Receipt Date: 20120531
  Transmission Date: 20120825
  Serious: Yes (Other)
  Sender: FDA-Public Use
  Company Number: US-PFIZER INC-2012132418

PATIENT

DRUGS (1)
  1. LYRICA [Suspect]
     Dosage: UNK

REACTIONS (6)
  - FEELING OF BODY TEMPERATURE CHANGE [None]
  - WITHDRAWAL SYNDROME [None]
  - ANXIETY [None]
  - NAUSEA [None]
  - INSOMNIA [None]
  - POSTOPERATIVE WOUND INFECTION [None]
